FAERS Safety Report 4414684-5 (Version None)
Quarter: 2004Q3

REPORT INFORMATION
  Report Type: 
  Country: None (occurrence: None)
  Receive Date: 20040729
  Receipt Date: 20040716
  Transmission Date: 20050211
  Serious: Yes (Death)
  Sender: FDA-Public Use
  Company Number: NSADSS2003006973

PATIENT
  Age: 78 Year
  Sex: Male
  Weight: 58.9676 kg

DRUGS (5)
  1. DURAGESIC [Suspect]
     Indication: PAIN
     Dosage: 50 MG, 1 IN 72 HOUR, TRANSDERMAL
     Route: 062
     Dates: start: 20020701
  2. HYDROCODONE BITARTRATE [Concomitant]
  3. VALDECOXIB [Concomitant]
  4. PILOCARPINE (PILOCARPINE) [Concomitant]
  5. PRILOSEC [Concomitant]

REACTIONS (1)
  - DEATH [None]
